FAERS Safety Report 18224030 (Version 3)
Quarter: 2020Q3

REPORT INFORMATION
  Report Type: Spontaneous
  Country: US (occurrence: US)
  Receive Date: 20200902
  Receipt Date: 20200910
  Transmission Date: 20201103
  Serious: No
  Sender: FDA-Public Use
  Company Number: NVSC2020US234750

PATIENT
  Sex: Female

DRUGS (1)
  1. DUREZOL [Suspect]
     Active Substance: DIFLUPREDNATE
     Indication: RETINOPATHY
     Dosage: UNK, UNKNOWN
     Route: 065

REACTIONS (2)
  - Blood insulin increased [Unknown]
  - Product use in unapproved indication [Unknown]
